FAERS Safety Report 21790472 (Version 2)
Quarter: 2023Q1

REPORT INFORMATION
  Report Type: Spontaneous
  Country: US (occurrence: US)
  Receive Date: 20221228
  Receipt Date: 20230111
  Transmission Date: 20230417
  Serious: Yes (Hospitalization)
  Sender: FDA-Public Use
  Company Number: US-TEVA-2022-US-2839291

PATIENT
  Sex: Male

DRUGS (1)
  1. BUPROPION [Suspect]
     Active Substance: BUPROPION
     Indication: Euphoric mood
     Dosage: CRUSHING AND INSUFFLATING 8 TO 9 RANDOM COMBINATIONS OF 150MG AND 300MG TABLETS OF BUPROPION EVER...
     Route: 045

REACTIONS (4)
  - Psychotic disorder [Recovering/Resolving]
  - Suicidal ideation [Recovering/Resolving]
  - Hyponatraemia [Recovered/Resolved]
  - Intentional product misuse [Recovering/Resolving]
